FAERS Safety Report 9266596 (Version 2)
Quarter: 2013Q2

REPORT INFORMATION
  Report Type: Report from Study
  Country: US (occurrence: US)
  Receive Date: 20130502
  Receipt Date: 20130507
  Transmission Date: 20140414
  Serious: Yes (Hospitalization)
  Sender: FDA-Public Use
  Company Number: PHEH2013US003621

PATIENT
  Age: 53 Year
  Sex: Female
  Weight: 68.27 kg

DRUGS (11)
  1. GILENYA [Suspect]
     Indication: MULTIPLE SCLEROSIS
     Dosage: 0.5 MG, DAILY
     Route: 048
     Dates: start: 20120814
  2. WELLBUTRIN [Concomitant]
     Dosage: 100 MG, UNK
  3. ALPRAZOLAM [Concomitant]
     Dosage: 1 MG, UNK
  4. AMBIEN [Concomitant]
     Dosage: 10 MG, UNK
  5. APAP W/HYDROCODONE [Concomitant]
  6. COLACE [Concomitant]
     Dosage: 100 MG, UNK
  7. BENADRYL [Concomitant]
     Dosage: 25 MG, UNK
  8. IMODIUM A-D [Concomitant]
     Dosage: 2 MG, UNK
  9. ASA [Concomitant]
     Dosage: 81 MG, UNK
  10. CORTISONE [Concomitant]
     Dosage: 1 %, UNK
  11. CYMBALTA [Concomitant]
     Dosage: 30 MG, UNK

REACTIONS (8)
  - Heart rate irregular [Unknown]
  - Palpitations [Unknown]
  - Dyspnoea [Unknown]
  - Chest discomfort [Not Recovered/Not Resolved]
  - Drug hypersensitivity [Not Recovered/Not Resolved]
  - Multiple sclerosis relapse [Not Recovered/Not Resolved]
  - Fatigue [Unknown]
  - Asthenia [Unknown]
